FAERS Safety Report 8443530-8 (Version None)
Quarter: 2012Q2

REPORT INFORMATION
  Report Type: 
  Country: None (occurrence: None)
  Receive Date: 20120605
  Receipt Date: 20120531
  Transmission Date: 20120825
  Serious: Yes (Death)
  Sender: FDA-Public Use
  Company Number: 2012SP029479

PATIENT
  Age: 60 Year
  Sex: Male
  Weight: 80 kg

DRUGS (4)
  1. VIRAFERONPEG [Suspect]
     Indication: HEPATITIS C
     Dosage: 150 MCG;QW
     Dates: start: 20110302, end: 20111222
  2. COPEGUS [Suspect]
     Indication: HEPATITIS C
     Dosage: 1200 MG;QD
     Dates: start: 20110302, end: 20111222
  3. PENTOXIFYLLINE [Concomitant]
  4. VICTRELIS [Suspect]
     Indication: HEPATITIS C
     Dosage: 750 MG;TID
     Dates: start: 20110302, end: 20111222

REACTIONS (3)
  - SEPTIC SHOCK [None]
  - MULTI-ORGAN FAILURE [None]
  - INFECTION [None]
